FAERS Safety Report 25935116 (Version 1)
Quarter: 2025Q4

REPORT INFORMATION
  Report Type: Other
  Country: EU (occurrence: EU)
  Receive Date: 20251017
  Receipt Date: 20251017
  Transmission Date: 20260118
  Serious: Yes (Other)
  Sender: LANTHEUS MEDICAL IMAGING
  Company Number: EU-LANTHEUS-LMI-2025-01380

PATIENT
  Age: 47 Year
  Sex: Male

DRUGS (1)
  1. PERFLUTREN [Suspect]
     Active Substance: PERFLUTREN
     Indication: High intensity focused ultrasound
     Dosage: UNK
     Route: 042
     Dates: start: 20240717, end: 20240717

REACTIONS (1)
  - Brain oedema [Not Recovered/Not Resolved]

NARRATIVE: CASE EVENT DATE: 20240807
